FAERS Safety Report 6261059-2 (Version None)
Quarter: 2009Q3

REPORT INFORMATION
  Report Type: 
  Country: None (occurrence: None)
  Receive Date: 20090707
  Receipt Date: 20090629
  Transmission Date: 20100115
  Serious: Yes (Other)
  Sender: FDA-Public Use
  Company Number: CHPA2009US14468

PATIENT
  Age: 55 Year
  Sex: Male

DRUGS (1)
  1. EXCEDRIN (MIGRAINE) [Suspect]
     Dosage: 1 DF, QD, ORAL
     Route: 048

REACTIONS (1)
  - RENAL FAILURE CHRONIC [None]
